FAERS Safety Report 9139227 (Version 1)
Quarter: 2013Q1

REPORT INFORMATION
  Report Type: Spontaneous
  Country: US (occurrence: US)
  Receive Date: 20130305
  Receipt Date: 20130305
  Transmission Date: 20140127
  Serious: No
  Sender: FDA-Public Use
  Company Number: US-009507513-1303USA001448

PATIENT
  Sex: Male

DRUGS (3)
  1. PEG-INTRON [Suspect]
     Indication: HEPATITIS C
     Dosage: 120 MCG/0.5
     Dates: start: 20130110
  2. PEG-INTRON [Suspect]
     Dosage: 120 MCG/0.3
  3. RIBAVIRIN [Suspect]
     Indication: HEPATITIS C
     Dosage: UNK
     Dates: start: 20130110

REACTIONS (11)
  - Memory impairment [Unknown]
  - Weight decreased [Unknown]
  - Insomnia [Unknown]
  - Dry mouth [Unknown]
  - Headache [Unknown]
  - Decreased appetite [Unknown]
  - Asthenia [Unknown]
  - Injection site reaction [Unknown]
  - Platelet count decreased [Unknown]
  - Thrombocytopenia [Unknown]
  - Fatigue [Unknown]
